FAERS Safety Report 8016190-8 (Version None)
Quarter: 2011Q4

REPORT INFORMATION
  Report Type: 
  Country: None (occurrence: None)
  Receive Date: 20111230
  Receipt Date: 20111216
  Transmission Date: 20120403
  Serious: Yes (Hospitalization, Other)
  Sender: FDA-Public Use
  Company Number: DE-CELGENEUS-062-21880-11122230

PATIENT
  Sex: Female

DRUGS (2)
  1. REVLIMID [Suspect]
     Route: 048
     Dates: start: 20111212
  2. REVLIMID [Suspect]
     Route: 048
     Dates: start: 20110819

REACTIONS (2)
  - DEPRESSED MOOD [None]
  - DRUG ABUSE [None]
